FAERS Safety Report 5369716-7 (Version None)
Quarter: 2007Q2

REPORT INFORMATION
  Report Type: 
  Country: None (occurrence: None)
  Receive Date: 20070625
  Receipt Date: 20070613
  Transmission Date: 20071010
  Serious: Yes (Other)
  Sender: FDA-Public Use
  Company Number: US-PFIZER INC-2007049492

PATIENT
  Sex: Female
  Weight: 77.1 kg

DRUGS (1)
  1. CHANTIX [Suspect]
     Indication: EX-SMOKER
     Dates: start: 20070504, end: 20070522

REACTIONS (12)
  - ANGER [None]
  - BLOOD PRESSURE ABNORMAL [None]
  - DEPRESSION [None]
  - FEELING ABNORMAL [None]
  - FLUID RETENTION [None]
  - HOMICIDAL IDEATION [None]
  - HYPOAESTHESIA [None]
  - MENTAL DISORDER [None]
  - MOOD SWINGS [None]
  - PAIN [None]
  - PARAESTHESIA [None]
  - PSYCHOMOTOR HYPERACTIVITY [None]
